FAERS Safety Report 20431690 (Version 3)
Quarter: 2022Q4

REPORT INFORMATION
  Report Type: Report from Study
  Country: US (occurrence: None)
  Receive Date: 20220204
  Receipt Date: 20221006
  Transmission Date: 20230113
  Serious: Yes (Death)
  Sender: FDA-Public Use
  Company Number: US-ROCHE-3013372

PATIENT
  Age: 58 Year

DRUGS (6)
  1. ATEZOLIZUMAB [Suspect]
     Active Substance: ATEZOLIZUMAB
     Indication: Poorly differentiated thyroid carcinoma
     Route: 041
  2. BEVACIZUMAB [Suspect]
     Active Substance: BEVACIZUMAB
     Indication: Poorly differentiated thyroid carcinoma
     Route: 065
  3. PACLITAXEL [Suspect]
     Active Substance: PACLITAXEL
     Indication: Poorly differentiated thyroid carcinoma
     Route: 065
  4. VEMURAFENIB [Suspect]
     Active Substance: VEMURAFENIB
     Indication: Poorly differentiated thyroid carcinoma
     Route: 048
  5. COBIMETINIB [Suspect]
     Active Substance: COBIMETINIB
     Indication: Poorly differentiated thyroid carcinoma
     Route: 048
  6. PACLITAXEL [Suspect]
     Active Substance: PACLITAXEL
     Indication: Poorly differentiated thyroid carcinoma
     Route: 065

REACTIONS (1)
  - Myopathy [Fatal]

NARRATIVE: CASE EVENT DATE: 20220125
